FAERS Safety Report 6419552-5 (Version None)
Quarter: 2009Q4

REPORT INFORMATION
  Report Type: 
  Country: None (occurrence: None)
  Receive Date: 20091027
  Receipt Date: 20091020
  Transmission Date: 20100525
  Serious: Yes (Hospitalization)
  Sender: FDA-Public Use
  Company Number: 20097586

PATIENT
  Age: 37 Year
  Sex: Male
  Weight: 48.5 kg

DRUGS (5)
  1. BACLOFEN [Suspect]
     Indication: MUSCLE SPASTICITY
     Dosage: 50-90 MCG, DAILY, INTRATHECAL SEE E
     Route: 037
     Dates: start: 20080415
  2. RINLAXER [Concomitant]
  3. LOXOPROFEN [Concomitant]
  4. MUCOSTA [Concomitant]
  5. LENDORMIN D [Concomitant]

REACTIONS (4)
  - HEADACHE [None]
  - INCISION SITE COMPLICATION [None]
  - INTRACRANIAL HYPOTENSION [None]
  - MEDICAL DEVICE COMPLICATION [None]
